FAERS Safety Report 8669896 (Version 2)
Quarter: 2012Q4

REPORT INFORMATION
  Report Type: 
  Country: US (occurrence: US)
  Receive Date: 20120718
  Receipt Date: 20121219
  Transmission Date: 20130627
  Serious: Yes (Congenital Anomaly, Other)
  Sender: FDA-Public Use
  Company Number: US-PFIZER INC-2012170676

PATIENT
  Sex: Female

DRUGS (1)
  1. ZOLOFT [Suspect]
     Dosage: UNK
     Route: 064
     Dates: start: 200309

REACTIONS (4)
  - Maternal exposure timing unspecified [Unknown]
  - Congenital aortic valve stenosis [Unknown]
  - Congenital coronary artery malformation [Unknown]
  - Bicuspid aortic valve [Unknown]
